FAERS Safety Report 7179226-2 (Version None)
Quarter: 2010Q4

REPORT INFORMATION
  Report Type: 
  Country: None (occurrence: None)
  Receive Date: 20101221
  Receipt Date: 20101213
  Transmission Date: 20110411
  Serious: Yes (Hospitalization, Other)
  Sender: FDA-Public Use
  Company Number: US-PFIZER INC-2010170936

PATIENT
  Sex: Male
  Weight: 79.365 kg

DRUGS (6)
  1. CELEBREX [Suspect]
     Indication: ARTHRITIS
     Dosage: 200 MG, 2X/DAY
     Route: 048
     Dates: end: 20101201
  2. CELEBREX [Suspect]
     Indication: BACK PAIN
  3. SIMVASTATIN [Concomitant]
     Indication: BLOOD CHOLESTEROL INCREASED
     Dosage: UNK
  4. LISINOPRIL [Concomitant]
     Indication: HYPERTENSION
     Dosage: 40 MG, UNK
  5. GEMFIBROZIL [Concomitant]
     Dosage: 600 MG, UNK
  6. METFORMIN [Concomitant]
     Dosage: UNK

REACTIONS (6)
  - BLOOD URINE PRESENT [None]
  - CONSCIOUSNESS FLUCTUATING [None]
  - EAR PAIN [None]
  - HYPOAESTHESIA [None]
  - PAIN [None]
  - TINNITUS [None]
